FAERS Safety Report 25883927 (Version 1)
Quarter: 2025Q4

REPORT INFORMATION
  Report Type: Spontaneous
  Country: CO (occurrence: CO)
  Receive Date: 20251006
  Receipt Date: 20251006
  Transmission Date: 20260118
  Serious: Yes (Other)
  Sender: AMGEN
  Company Number: CO-AMGEN-COLSP2025194321

PATIENT
  Sex: Male

DRUGS (2)
  1. BLINCYTO [Suspect]
     Active Substance: BLINATUMOMAB
     Indication: B precursor type acute leukaemia
     Dosage: 28 MICROGRAM, QD, CONTINUOUS INFUSION FOR 28 DAYS
     Route: 065
  2. BLINCYTO [Suspect]
     Active Substance: BLINATUMOMAB
     Indication: CD19 antigen

REACTIONS (2)
  - Acute lymphocytic leukaemia recurrent [Unknown]
  - Treatment failure [Unknown]

NARRATIVE: CASE EVENT DATE: 20250918
